FAERS Safety Report 14665029 (Version 1)
Quarter: 2018Q1

REPORT INFORMATION
  Report Type: Spontaneous
  Country: US (occurrence: US)
  Receive Date: 20180321
  Receipt Date: 20180321
  Transmission Date: 20180509
  Serious: Yes (Other)
  Sender: FDA-Public Use
  Company Number: US-SAOL THERAPEUTICS-2018SAO00369

PATIENT
  Sex: Male

DRUGS (3)
  1. BACLOFEN. [Suspect]
     Active Substance: BACLOFEN
     Indication: MUSCLE SPASTICITY
     Route: 037
  2. CLONIDINE. [Suspect]
     Active Substance: CLONIDINE
     Route: 037
  3. BACLOFEN. [Suspect]
     Active Substance: BACLOFEN
     Indication: HEAD INJURY

REACTIONS (6)
  - Muscle spasticity [Unknown]
  - Scar [Unknown]
  - Back injury [Unknown]
  - Device infusion issue [Unknown]
  - Road traffic accident [Unknown]
  - Therapy non-responder [Unknown]

NARRATIVE: CASE EVENT DATE: 20130603
